FAERS Safety Report 9258981 (Version 1)
Quarter: 2013Q2

REPORT INFORMATION
  Report Type: Spontaneous
  Country: US (occurrence: US)
  Receive Date: 20130426
  Receipt Date: 20130426
  Transmission Date: 20140414
  Serious: Yes (Hospitalization)
  Sender: FDA-Public Use
  Company Number: US-TEVA-400990USA

PATIENT
  Sex: Male

DRUGS (1)
  1. PROAIR HFA [Suspect]

REACTIONS (2)
  - Panic attack [Recovered/Resolved]
  - Asthma [Recovered/Resolved]
